FAERS Safety Report 23154520 (Version 5)
Quarter: 2025Q4

REPORT INFORMATION
  Report Type: Spontaneous
  Country: JP (occurrence: JP)
  Receive Date: 20231107
  Receipt Date: 20251231
  Transmission Date: 20260117
  Serious: Yes (Death, Hospitalization, Other)
  Sender: FERRING
  Company Number: JP-ferring-EVA202301402FERRINGPH

PATIENT
  Age: 75 Year
  Sex: Male

DRUGS (5)
  1. DEGARELIX [Suspect]
     Active Substance: DEGARELIX
     Indication: Hormone-dependent prostate cancer
     Dosage: 240 MG, ONCE/SINGLE
     Route: 058
     Dates: start: 20230711, end: 20230711
  2. LEUPLIN [Suspect]
     Active Substance: LEUPROLIDE ACETATE
     Indication: Product used for unknown indication
     Dosage: 22.5 MG
     Route: 058
     Dates: start: 20230808
  3. DOCETAXEL [Suspect]
     Active Substance: DOCETAXEL
     Indication: Hormone-dependent prostate cancer
     Dosage: 80 % (50 MG/M2), FIRST CYCLE
     Route: 041
     Dates: start: 20230725
  4. DOCETAXEL [Suspect]
     Active Substance: DOCETAXEL
     Dosage: 50 MG/M2 (SECOND CYCLE)
     Route: 065
     Dates: start: 202308
  5. DAROLUTAMIDE [Suspect]
     Active Substance: DAROLUTAMIDE
     Indication: Hormone-dependent prostate cancer
     Dosage: 1200 MG
     Route: 048
     Dates: start: 20230701, end: 20230829

REACTIONS (3)
  - Stevens-Johnson syndrome [Fatal]
  - Sepsis [Fatal]
  - Multiple organ dysfunction syndrome [Fatal]
